FAERS Safety Report 8164030-9 (Version None)
Quarter: 2012Q1

REPORT INFORMATION
  Report Type: 
  Country: None (occurrence: None)
  Receive Date: 20120224
  Receipt Date: 20120216
  Transmission Date: 20120608
  Serious: Yes (Other)
  Sender: FDA-Public Use
  Company Number: PHHY2012FR014964

PATIENT
  Age: 64 Year
  Sex: Female

DRUGS (2)
  1. VOLTAREN [Suspect]
     Indication: CHONDROCALCINOSIS
     Dosage: 2 DF DAILY
     Route: 048
     Dates: start: 20120116, end: 20120130
  2. TARKA [Concomitant]

REACTIONS (6)
  - DIABETES MELLITUS [None]
  - DECREASED APPETITE [None]
  - LIVER FUNCTION TEST ABNORMAL [None]
  - VISION BLURRED [None]
  - GAMMA-GLUTAMYLTRANSFERASE INCREASED [None]
  - VISUAL IMPAIRMENT [None]
